FAERS Safety Report 4437906-3 (Version None)
Quarter: 2004Q3

REPORT INFORMATION
  Report Type: 
  Country: None (occurrence: None)
  Receive Date: 20040831
  Receipt Date: 20040820
  Transmission Date: 20050211
  Serious: Yes (Other)
  Sender: FDA-Public Use
  Company Number: US-MERCK-0408USA01696

PATIENT
  Age: 75 Year
  Sex: Male

DRUGS (2)
  1. ZETIA [Suspect]
     Indication: BLOOD CHOLESTEROL INCREASED
     Route: 048
     Dates: start: 20040301
  2. PRAVACHOL [Concomitant]
     Route: 048

REACTIONS (3)
  - BLINDNESS TRANSIENT [None]
  - FAT EMBOLISM [None]
  - RETINAL ARTERY OCCLUSION [None]
